FAERS Safety Report 6638849-7 (Version None)
Quarter: 2010Q1

REPORT INFORMATION
  Report Type: 
  Country: None (occurrence: None)
  Receive Date: 20100316
  Receipt Date: 20100316
  Transmission Date: 20100710
  Serious: Yes (Life-Threatening, Other)
  Sender: FDA-Public Use
  Company Number: None

PATIENT
  Age: 58 Year
  Sex: Female
  Weight: 71.6683 kg

DRUGS (1)
  1. SIMVASTATIN [Suspect]
     Indication: BLOOD CHOLESTEROL
     Dosage: 1 TABLET DAILY IN EVENING PO
     Route: 048
     Dates: start: 20090918, end: 20100114

REACTIONS (10)
  - ALOPECIA [None]
  - AMNESIA [None]
  - CARDIAC FIBRILLATION [None]
  - DRUG INEFFECTIVE [None]
  - HOT FLUSH [None]
  - MUSCULOSKELETAL PAIN [None]
  - PALPITATIONS [None]
  - PANIC ATTACK [None]
  - PRURITUS [None]
  - RASH [None]
